FAERS Safety Report 8317355-8 (Version None)
Quarter: 2012Q2

REPORT INFORMATION
  Report Type: 
  Country: None (occurrence: None)
  Receive Date: 20120427
  Receipt Date: 20120425
  Transmission Date: 20120825
  Serious: Yes (Death, Hospitalization)
  Sender: FDA-Public Use
  Company Number: US-B.I. PHARMACEUTICALS,INC./RIDGEFIELD-2012-BP-09493BP

PATIENT
  Age: 8 Decade
  Sex: Female

DRUGS (2)
  1. PRADAXA [Suspect]
  2. PLAVIX [Concomitant]

REACTIONS (2)
  - VASCULITIS [None]
  - DEATH [None]
